FAERS Safety Report 17674564 (Version 1)
Quarter: 2020Q2

REPORT INFORMATION
  Report Type: Report from Study
  Country: DE (occurrence: DE)
  Receive Date: 20200416
  Receipt Date: 20200416
  Transmission Date: 20200714
  Serious: Yes (Hospitalization, Other)
  Sender: FDA-Public Use
  Company Number: DE-ROCHE-2069709

PATIENT
  Age: 64 Year
  Sex: Female

DRUGS (8)
  1. PREDNISOLON [PREDNISOLONE] [Concomitant]
     Active Substance: PREDNISOLONE
     Route: 065
  2. ROACTEMRA [Suspect]
     Active Substance: TOCILIZUMAB
     Indication: TEMPORAL ARTERITIS
     Route: 042
     Dates: start: 20170315, end: 20180711
  3. METOPROLOL. [Concomitant]
     Active Substance: METOPROLOL
  4. VALSARTAN. [Concomitant]
     Active Substance: VALSARTAN
     Route: 065
  5. L-THYROXIN [LEVOTHYROXINE SODIUM] [Concomitant]
     Active Substance: LEVOTHYROXINE SODIUM
  6. ROACTEMRA [Suspect]
     Active Substance: TOCILIZUMAB
     Indication: RHEUMATOID ARTHRITIS
     Dosage: ACCORDING TO BODY WEIGHT
     Route: 042
     Dates: start: 20181128
  7. PREDNISOLON [PREDNISOLONE] [Concomitant]
     Active Substance: PREDNISOLONE
     Route: 065
  8. TEMGESIC [Concomitant]
     Active Substance: BUPRENORPHINE HYDROCHLORIDE

REACTIONS (15)
  - Vomiting [Recovered/Resolved]
  - Nausea [Recovered/Resolved]
  - Bone contusion [Recovered/Resolved]
  - Pain in jaw [Not Recovered/Not Resolved]
  - Gamma-glutamyltransferase increased [Recovered/Resolved]
  - Sialoadenitis [Unknown]
  - Cystitis [Recovered/Resolved]
  - Lipase increased [Recovered/Resolved]
  - Blood creatine phosphokinase increased [Recovered/Resolved]
  - Ear pain [Recovered/Resolved]
  - Headache [Recovered/Resolved]
  - Herpes zoster [Recovered/Resolved]
  - Temporal arteritis [Not Recovered/Not Resolved]
  - Hypersensitivity [Recovered/Resolved]
  - Fall [Unknown]

NARRATIVE: CASE EVENT DATE: 201801
